FAERS Safety Report 25987817 (Version 1)
Quarter: 2025Q4

REPORT INFORMATION
  Report Type: Spontaneous
  Country: US (occurrence: US)
  Receive Date: 20251103
  Receipt Date: 20251103
  Transmission Date: 20260119
  Serious: No
  Sender: ROCHE
  Company Number: US-ROCHE-10000419049

PATIENT
  Sex: Female

DRUGS (3)
  1. XOLAIR PFS [Suspect]
     Active Substance: OMALIZUMAB
     Indication: Nasal polyps
     Route: 058
     Dates: start: 202305
  2. XOLAIR PFS [Suspect]
     Active Substance: OMALIZUMAB
  3. DUPIXENT [Suspect]
     Active Substance: DUPILUMAB
     Indication: Nasal polyps
     Route: 065

REACTIONS (3)
  - Eye discharge [Recovered/Resolved]
  - Eye pain [Unknown]
  - Eye disorder [Unknown]
